FAERS Safety Report 13491408 (Version 1)
Quarter: 2017Q2

REPORT INFORMATION
  Report Type: Spontaneous
  Country: US (occurrence: US)
  Receive Date: 20170427
  Receipt Date: 20170427
  Transmission Date: 20170830
  Serious: Yes (Hospitalization, Other)
  Sender: FDA-Public Use
  Company Number: US-PFIZER INC-2017028791

PATIENT
  Age: 53 Year
  Sex: Male

DRUGS (21)
  1. TOSITUMOMAB-IODINE 131 [Concomitant]
     Active Substance: IODINE\TOSITUMOMAB
     Indication: HYPERTHYROIDISM
  2. STREPTOMYCIN [Concomitant]
     Active Substance: STREPTOMYCIN\STREPTOMYCIN SULFATE
     Dosage: 0.5 MG, 2X/DAY
     Route: 030
  3. DIGITALIS [Concomitant]
     Active Substance: DIGITALIS
     Route: 042
  4. PROCAINAMIDE [Suspect]
     Active Substance: PROCAINAMIDE HYDROCHLORIDE
     Indication: CARDIAC FIBRILLATION
  5. DIGOXIN. [Concomitant]
     Active Substance: DIGOXIN
     Dosage: (0.25 TO 0.50 MG PER DAY)
     Route: 042
  6. SUCCINYLCHOLINE CHLORIDE. [Concomitant]
     Active Substance: SUCCINYLCHOLINE CHLORIDE
     Indication: ANAESTHESIA
  7. DIOCTYL SODIUM SULFOSUCCINATE [Concomitant]
  8. PENICILLIN /00000901/ [Concomitant]
     Active Substance: PENICILLIN G
     Dosage: (20 MILLION UNITS PER DAY)
     Route: 042
  9. PROCAINAMIDE [Suspect]
     Active Substance: PROCAINAMIDE HYDROCHLORIDE
     Indication: VENTRICULAR TACHYCARDIA
     Dosage: 500 MG EVERY 6 HOURS
     Route: 042
  10. CEDILANID [Concomitant]
     Indication: ATRIAL FLUTTER
     Dosage: 0.4 MG, UNK
     Route: 042
  11. DIGOXIN. [Concomitant]
     Active Substance: DIGOXIN
     Indication: ATRIAL FLUTTER
     Dosage: 0.25 MG, DAILY
  12. OXYGEN. [Concomitant]
     Active Substance: OXYGEN
     Indication: CYANOSIS
     Dosage: UNK
  13. OXYGEN. [Concomitant]
     Active Substance: OXYGEN
     Indication: RESPIRATORY DISTRESS
     Dosage: 100 %, UNK
  14. MORPHINE SULFATE. [Concomitant]
     Active Substance: MORPHINE SULFATE
     Route: 042
  15. CHLORAL HYDRATE [Concomitant]
     Active Substance: CHLORAL HYDRATE
     Dosage: (OCCASIONAL DOSES)
  16. PRONESTYL [Suspect]
     Active Substance: PROCAINAMIDE HYDROCHLORIDE
     Indication: CARDIAC FIBRILLATION
  17. NITROUS OXIDE. [Concomitant]
     Active Substance: NITROUS OXIDE
     Indication: ANAESTHESIA
     Dosage: UNK
  18. XYLOCAINE [Concomitant]
     Active Substance: LIDOCAINE HYDROCHLORIDE
     Indication: VENTRICULAR TACHYCARDIA
     Dosage: 50 MG, UNK
     Route: 042
  19. XYLOCAINE [Concomitant]
     Active Substance: LIDOCAINE HYDROCHLORIDE
     Indication: CARDIAC FIBRILLATION
  20. PRONESTYL [Suspect]
     Active Substance: PROCAINAMIDE HYDROCHLORIDE
     Indication: VENTRICULAR TACHYCARDIA
     Dosage: 200 MG, UNK
  21. QUINIDINE [Concomitant]
     Active Substance: QUINIDINE
     Indication: ATRIAL FLUTTER
     Dosage: 0.4 G, 3X/DAY

REACTIONS (2)
  - Systemic lupus erythematosus [Recovering/Resolving]
  - Vasculitis [Recovering/Resolving]
